FAERS Safety Report 15296075 (Version 1)
Quarter: 2018Q3

REPORT INFORMATION
  Report Type: Spontaneous
  Country: US (occurrence: US)
  Receive Date: 20180820
  Receipt Date: 20180820
  Transmission Date: 20181010
  Serious: Yes (Death, Life-Threatening, Hospitalization)
  Sender: FDA-Public Use
  Company Number: US-MYLANLABS-2018M1061464

PATIENT
  Age: 53 Year
  Sex: Male

DRUGS (2)
  1. CEFEPIME [Concomitant]
     Active Substance: CEFEPIME HYDROCHLORIDE
     Indication: PRODUCT USED FOR UNKNOWN INDICATION
  2. HEPARIN [Suspect]
     Active Substance: HEPARIN SODIUM
     Indication: ANTICOAGULANT THERAPY
     Route: 065

REACTIONS (5)
  - Heparin-induced thrombocytopenia [Fatal]
  - Deep vein thrombosis [Fatal]
  - Brain injury [Fatal]
  - Peripheral artery thrombosis [Fatal]
  - Pulseless electrical activity [Recovered/Resolved]
